FAERS Safety Report 18503782 (Version 1)
Quarter: 2020Q4

REPORT INFORMATION
  Report Type: Spontaneous
  Country: FR (occurrence: FR)
  Receive Date: 20201113
  Receipt Date: 20201113
  Transmission Date: 20210114
  Serious: Yes (Hospitalization)
  Sender: FDA-Public Use
  Company Number: FR-MYLANLABS-2020M1094586

PATIENT
  Age: 47 Year
  Sex: Male

DRUGS (20)
  1. PRAVASTATIN SODIUM. [Concomitant]
     Active Substance: PRAVASTATIN SODIUM
     Dosage: UNK
  2. LEVOTHYROX [Concomitant]
     Active Substance: LEVOTHYROXINE
     Dosage: UNK
  3. PANTOPRAZOLE [Concomitant]
     Active Substance: PANTOPRAZOLE
     Dosage: UNK
  4. HUMALOG [Concomitant]
     Active Substance: INSULIN LISPRO
     Dosage: UNK
  5. COVERSYL                           /00790703/ [Interacting]
     Active Substance: PERINDOPRIL
     Indication: HYPERTENSION
     Dosage: 8 MILLIGRAM, QD
     Route: 048
     Dates: end: 20170503
  6. CERTICAN [Concomitant]
     Active Substance: EVEROLIMUS
     Dosage: UNK
  7. CELLCEPT [Concomitant]
     Active Substance: MYCOPHENOLATE MOFETIL\MYCOPHENOLATE MOFETIL HYDROCHLORIDE
     Dosage: UNK
  8. BACTRIM [Concomitant]
     Active Substance: SULFAMETHOXAZOLE\TRIMETHOPRIM
     Dosage: UNK
  9. CORTANCYL [Concomitant]
     Active Substance: PREDNISONE
     Dosage: UNK
  10. NEORAL [Concomitant]
     Active Substance: CYCLOSPORINE
     Dosage: UNK
  11. DOLIPRANE [Concomitant]
     Active Substance: ACETAMINOPHEN
     Dosage: UNK
  12. GABAPENTINE [Concomitant]
     Active Substance: GABAPENTIN
     Dosage: UNK
  13. NEORAL [Concomitant]
     Active Substance: CYCLOSPORINE
     Dosage: UNK
  14. FUROSEMIDE. [Suspect]
     Active Substance: FUROSEMIDE
     Indication: HYPERTENSION
     Dosage: 120 MILLIGRAM, QD
     Route: 048
  15. NEORAL [Interacting]
     Active Substance: CYCLOSPORINE
     Indication: TRANSPLANT
     Dosage: 200 MILLIGRAM, QD
     Route: 048
  16. ACUPAN [Concomitant]
     Active Substance: NEFOPAM HYDROCHLORIDE
     Dosage: UNK
  17. BUPRENORPHINE. [Concomitant]
     Active Substance: BUPRENORPHINE
     Dosage: UNK
  18. LANTUS [Concomitant]
     Active Substance: INSULIN GLARGINE
     Dosage: UNK
  19. NEORAL [Interacting]
     Active Substance: CYCLOSPORINE
     Indication: TRANSPLANT
     Dosage: 50 MILLIGRAM, QD
     Route: 048
  20. EUPRESSYL                          /00631801/ [Concomitant]
     Active Substance: URAPIDIL
     Dosage: UNK

REACTIONS (2)
  - Acute kidney injury [Recovered/Resolved]
  - Drug interaction [Unknown]

NARRATIVE: CASE EVENT DATE: 201705
